FAERS Safety Report 9742985 (Version 1)
Quarter: 2013Q4

REPORT INFORMATION
  Report Type: Spontaneous
  Country: FR (occurrence: FR)
  Receive Date: 20131210
  Receipt Date: 20131210
  Transmission Date: 20140711
  Serious: Yes (Other)
  Sender: FDA-Public Use
  Company Number: FR-PFIZER INC-2013349085

PATIENT
  Age: 64 Year
  Sex: Female

DRUGS (17)
  1. TAZOCILLINE [Suspect]
     Indication: ANTIBIOTIC THERAPY
     Dosage: UNK
     Dates: start: 20130906
  2. ZYVOXID [Suspect]
     Indication: ANTIBIOTIC THERAPY
     Dosage: UNK
     Dates: start: 20130906
  3. CIPROFLOXACINE [Suspect]
     Indication: ANTIBIOTIC THERAPY
     Dosage: UNK
     Dates: start: 20130907, end: 201309
  4. TAHOR [Concomitant]
     Indication: HYPERCHOLESTEROLAEMIA
     Dosage: 10 MG, 1X/DAY
     Route: 048
  5. PREVISCAN [Concomitant]
     Indication: ATRIAL FIBRILLATION
     Dosage: DOSAGE ADJUSTED FOR INR BETWEEN 2 AND 3
     Route: 048
  6. ARICEPT [Concomitant]
     Indication: DEMENTIA
     Dosage: 10 MG, 1X/DAY
     Route: 048
  7. EBIXA [Concomitant]
     Indication: DEMENTIA
     Dosage: 20 MG, 1X/DAY
     Route: 048
  8. ATHYMIL [Concomitant]
     Dosage: 15 MG, 1X/DAY
     Route: 048
  9. RISPERDAL [Concomitant]
     Dosage: 1 MG, 1X/DAY
     Route: 048
  10. TAREG [Concomitant]
     Indication: HYPERTENSION
     Dosage: 40 MG, 1X/DAY
     Route: 048
  11. LASILIX [Concomitant]
     Indication: HYPERTENSION
     Dosage: 40 MG, 1X/DAY
     Route: 048
  12. CARDENSIEL [Concomitant]
     Indication: HYPERTENSION
     Dosage: 2.5 MG, 1X/DAY
     Route: 048
  13. INEXIUM [Concomitant]
     Dosage: 20 MG, DAILY
     Route: 048
  14. LANTUS [Concomitant]
     Dosage: 100 IU/ML
     Route: 058
  15. ZYLORIC [Concomitant]
     Indication: HYPERURICAEMIA
     Dosage: 100 MG, 1X/DAY
     Route: 048
  16. NOVORAPID [Concomitant]
  17. NORADRENALINE [Concomitant]
     Dosage: UNK
     Dates: start: 20130906

REACTIONS (1)
  - Electrocardiogram QT prolonged [Recovered/Resolved]
